FAERS Safety Report 9814870 (Version 3)
Quarter: 2014Q4

REPORT INFORMATION
  Report Type: Spontaneous
  Country: JP (occurrence: JP)
  Receive Date: 20140113
  Receipt Date: 20141126
  Transmission Date: 20150529
  Serious: Yes (Hospitalization, Other)
  Sender: FDA-Public Use
  Company Number: JP-GLAXOSMITHKLINE-B0652765A

PATIENT
  Age: 61 Year
  Sex: Male

DRUGS (8)
  1. LAMOTRIGINE. [Suspect]
     Active Substance: LAMOTRIGINE
     Indication: EPILEPSY
     Dosage: 25 MG, QOD
     Route: 048
     Dates: start: 20100209, end: 20100222
  2. LAMOTRIGINE. [Suspect]
     Active Substance: LAMOTRIGINE
     Dosage: 25 MG, QD
     Route: 048
     Dates: start: 20100223, end: 20100309
  3. DEPAKENE [Concomitant]
     Active Substance: VALPROIC ACID
     Indication: EPILEPSY
     Dosage: 200 MG, BID
     Dates: start: 20100209
  4. ALEVIATIN [Concomitant]
     Active Substance: PHENYTOIN SODIUM
     Indication: LIVER DISORDER
     Dosage: UNK
     Dates: start: 200907
  5. TEGRETOL [Concomitant]
     Active Substance: CARBAMAZEPINE
     Indication: LIVER DISORDER
     Dosage: UNK
     Dates: start: 200911
  6. MYSTAN [Concomitant]
     Active Substance: CLOBAZAM
     Indication: LIVER DISORDER
     Dosage: UNK
     Dates: start: 201001
  7. EXCEGRAN [Concomitant]
     Active Substance: ZONISAMIDE
     Indication: LIVER DISORDER
     Dosage: UNK
     Dates: start: 201001
  8. DEPAKENE [Concomitant]
     Active Substance: VALPROIC ACID
     Dosage: 200 MG, BID
     Route: 048
     Dates: start: 20100223

REACTIONS (10)
  - Skin exfoliation [Unknown]
  - Generalised erythema [Unknown]
  - Drug reaction with eosinophilia and systemic symptoms [Recovered/Resolved]
  - Skin exfoliation [Unknown]
  - White blood cell count increased [Unknown]
  - Seizure [Unknown]
  - Rash [Unknown]
  - Erythema [Unknown]
  - Hepatic function abnormal [Unknown]
  - Pyrexia [Unknown]

NARRATIVE: CASE EVENT DATE: 2010
